FAERS Safety Report 4559993-4 (Version None)
Quarter: 2005Q1

REPORT INFORMATION
  Report Type: 
  Country: None (occurrence: None)
  Receive Date: 20050120
  Receipt Date: 20050120
  Transmission Date: 20050727
  Serious: No
  Sender: FDA-Public Use
  Company Number: None

PATIENT
  Age: 89 Year
  Sex: Female

DRUGS (10)
  1. NEURONTIN [Suspect]
     Indication: NEUROPATHY PERIPHERAL
     Dosage: 300 MGM  6AM ; 200 MGM  NOON ; 100 MGM 8PM
  2. NEURONTIN [Suspect]
     Indication: PAIN IN EXTREMITY
     Dosage: 300 MGM  6AM ; 200 MGM  NOON ; 100 MGM 8PM
  3. NORTRIPTYLINE HCL [Concomitant]
  4. LORAZEPAM [Concomitant]
  5. HYDROCHLOROTHIAZIDE [Concomitant]
  6. PREVACID [Concomitant]
  7. MAXAQUIN [Concomitant]
  8. NORVASC [Concomitant]
  9. DURAGESIC [Concomitant]
  10. ADVAIR DISKUS 100/50 [Concomitant]

REACTIONS (3)
  - NAUSEA [None]
  - PHARMACEUTICAL PRODUCT COMPLAINT [None]
  - RASH [None]
